FAERS Safety Report 17316465 (Version 5)
Quarter: 2021Q3

REPORT INFORMATION
  Report Type: Report from Study
  Country: US (occurrence: US)
  Receive Date: 20200124
  Receipt Date: 20210719
  Transmission Date: 20211014
  Serious: No
  Sender: FDA-Public Use
  Company Number: NVSC2020US018883

PATIENT
  Sex: Female

DRUGS (1)
  1. GILENYA [Suspect]
     Active Substance: FINGOLIMOD HYDROCHLORIDE
     Indication: MULTIPLE SCLEROSIS
     Dosage: 0.5 MG, QD
     Route: 048
     Dates: start: 20191115

REACTIONS (6)
  - Headache [Unknown]
  - Stress [Unknown]
  - Muscular weakness [Unknown]
  - Cough [Unknown]
  - Visual impairment [Unknown]
  - Product dose omission issue [Unknown]
